FAERS Safety Report 21961162 (Version 1)
Quarter: 2023Q1

REPORT INFORMATION
  Report Type: Spontaneous
  Country: US (occurrence: US)
  Receive Date: 20230207
  Receipt Date: 20230207
  Transmission Date: 20230418
  Serious: Yes (Other)
  Sender: FDA-Public Use
  Company Number: US-BRISTOL-MYERS SQUIBB COMPANY-2022-148695

PATIENT
  Age: 57 Year
  Sex: Male
  Weight: 93.44 kg

DRUGS (2)
  1. POMALYST [Suspect]
     Active Substance: POMALIDOMIDE
     Indication: Plasma cell myeloma
     Dosage: D 1-21 DAYS EVERY 28 DAYS
     Route: 048
     Dates: start: 20200713
  2. POMALYST [Suspect]
     Active Substance: POMALIDOMIDE
     Dosage: D 1-21 DAYS EVERY 28 DAYS
     Route: 048
     Dates: start: 20220115

REACTIONS (2)
  - White blood cell count decreased [Not Recovered/Not Resolved]
  - Atrial fibrillation [Not Recovered/Not Resolved]
